FAERS Safety Report 16885847 (Version 2)
Quarter: 2019Q4

REPORT INFORMATION
  Report Type: Spontaneous
  Country: US (occurrence: US)
  Receive Date: 20191004
  Receipt Date: 20191029
  Transmission Date: 20200122
  Serious: Yes (Other)
  Sender: FDA-Public Use
  Company Number: US-ASTRAZENECA-2019SF40063

PATIENT
  Age: 776 Month
  Sex: Female
  Weight: 90.7 kg

DRUGS (1)
  1. BYDUREON [Suspect]
     Active Substance: EXENATIDE
     Indication: TYPE 2 DIABETES MELLITUS
     Route: 058

REACTIONS (11)
  - Goitre [Unknown]
  - Lymphadenopathy [Recovered/Resolved]
  - Head injury [Unknown]
  - Urinary tract infection [Unknown]
  - Device leakage [Unknown]
  - Atrial fibrillation [Unknown]
  - Weight decreased [Unknown]
  - Lung carcinoma cell type unspecified stage I [Recovered/Resolved]
  - Wrist fracture [Unknown]
  - Fall [Unknown]
  - Electrocardiogram abnormal [Unknown]

NARRATIVE: CASE EVENT DATE: 201902
